FAERS Safety Report 7088353-X (Version None)
Quarter: 2010Q4

REPORT INFORMATION
  Report Type: 
  Country: None (occurrence: None)
  Receive Date: 20101108
  Receipt Date: 20101026
  Transmission Date: 20110411
  Serious: Yes (Hospitalization, Other)
  Sender: FDA-Public Use
  Company Number: US-ELI_LILLY_AND_COMPANY-US201011000486

PATIENT
  Age: 58 Year
  Sex: Male

DRUGS (5)
  1. EFFIENT [Suspect]
     Indication: ACUTE MYOCARDIAL INFARCTION
     Dosage: 10 MG, UNK
     Dates: start: 20100101
  2. LIPITOR [Concomitant]
     Dosage: 80 MG, UNK
  3. LOPRESSOR [Concomitant]
     Dosage: 50 MG, UNK
  4. ZESTRIL [Concomitant]
     Dosage: 40 MG, UNK
  5. ASPIRIN [Concomitant]
     Dosage: 325 MG, UNK

REACTIONS (1)
  - DEVICE OCCLUSION [None]
